FAERS Safety Report 7248935-9 (Version None)
Quarter: 2011Q1

REPORT INFORMATION
  Report Type: 
  Country: None (occurrence: None)
  Receive Date: 20110128
  Receipt Date: 20100727
  Transmission Date: 20110831
  Serious: Yes (Other)
  Sender: FDA-Public Use
  Company Number: US-BAYER-201029725NA

PATIENT
  Sex: Female
  Weight: 89.796 kg

DRUGS (9)
  1. YAZ [Suspect]
     Indication: CONTRACEPTION
     Route: 048
     Dates: start: 20080820, end: 20081030
  2. VENTOLIN HFA [Concomitant]
     Dosage: 0.090 MG, UNK
  3. SINGULAIR [Concomitant]
     Dosage: 10 MG, UNK
     Dates: start: 20080101
  4. PROMETHAZINE [Concomitant]
     Dosage: 25 MG, UNK
     Dates: start: 20080901, end: 20081001
  5. ZYRTEC [Concomitant]
     Dosage: UNK
     Dates: start: 20080909
  6. AZITHROMYCIN [Concomitant]
     Dosage: 250 MG, UNK
  7. PREDNISONE [Concomitant]
     Dosage: 20 MG, UNK
     Dates: start: 20081003, end: 20081014
  8. SULFAMETHOXAZOLE [Concomitant]
  9. ACIPHEX [Concomitant]
     Dosage: UNK
     Dates: start: 20080909

REACTIONS (5)
  - ABDOMINAL PAIN UPPER [None]
  - CHOLESTEROSIS [None]
  - CHOLELITHIASIS [None]
  - VOMITING [None]
  - NAUSEA [None]
